FAERS Safety Report 5446368-9 (Version None)
Quarter: 2007Q3

REPORT INFORMATION
  Report Type: 
  Country: None (occurrence: None)
  Receive Date: 20070907
  Receipt Date: 20070831
  Transmission Date: 20080115
  Serious: Yes (Other)
  Sender: FDA-Public Use
  Company Number: B0485426A

PATIENT
  Sex: Female

DRUGS (4)
  1. LAMOTRIGINE [Suspect]
     Indication: EPILEPSY
     Dosage: 175MG PER DAY
     Route: 065
  2. SERLAIN [Concomitant]
     Indication: DRUG USE FOR UNKNOWN INDICATION
     Route: 065
  3. MINULET [Concomitant]
     Indication: DRUG USE FOR UNKNOWN INDICATION
     Route: 065
  4. DEPAKENE [Concomitant]
     Indication: EPILEPSY
     Route: 065

REACTIONS (9)
  - BLISTER [None]
  - DYSHIDROSIS [None]
  - EPILEPSY [None]
  - HEADACHE [None]
  - PRURITUS [None]
  - RASH MACULO-PAPULAR [None]
  - SKIN DISORDER [None]
  - SKIN LESION [None]
  - TREMOR [None]
